FAERS Safety Report 4786872-X (Version None)
Quarter: 2005Q3

REPORT INFORMATION
  Report Type: 
  Country: None (occurrence: None)
  Receive Date: 20050930
  Receipt Date: 20050908
  Transmission Date: 20060218
  Serious: No
  Sender: FDA-Public Use
  Company Number: USA0508105606

PATIENT
  Age: 62 Year
  Sex: Male

DRUGS (6)
  1. CIALIS [Suspect]
     Dosage: 10 MG
     Dates: start: 20050223, end: 20050731
  2. DAPRIL (LISINOPRIL DIHYDRATE) [Concomitant]
  3. PRAVACHOL [Concomitant]
  4. TRAZODONE HCL [Concomitant]
  5. GARLIC [Concomitant]
  6. VITAMIN B-12 [Concomitant]

REACTIONS (7)
  - BLEPHARITIS [None]
  - CYANOPSIA [None]
  - DACRYOSTENOSIS ACQUIRED [None]
  - DRY EYE [None]
  - HEADACHE [None]
  - INTRAOCULAR PRESSURE INCREASED [None]
  - VISUAL DISTURBANCE [None]
